FAERS Safety Report 21917873 (Version 1)
Quarter: 2023Q1

REPORT INFORMATION
  Report Type: Spontaneous
  Country: CN (occurrence: CN)
  Receive Date: 20230127
  Receipt Date: 20230127
  Transmission Date: 20230418
  Serious: Yes (Other)
  Sender: FDA-Public Use
  Company Number: CN-BoehringerIngelheim-2023-BI-213774

PATIENT
  Age: 70 Year
  Sex: Female
  Weight: 70 kg

DRUGS (2)
  1. ALTEPLASE [Suspect]
     Active Substance: ALTEPLASE
     Indication: Cerebral infarction
     Route: 042
     Dates: start: 20230105, end: 20230105
  2. ALTEPLASE [Suspect]
     Active Substance: ALTEPLASE
     Dosage: MICROPUMP WAS MAINTAINED AT 37 MG/H
     Route: 042
     Dates: start: 20230105, end: 20230105

REACTIONS (2)
  - Upper gastrointestinal haemorrhage [Recovered/Resolved]
  - Fibrinolysis increased [Recovered/Resolved]

NARRATIVE: CASE EVENT DATE: 20230105
